FAERS Safety Report 21979858 (Version 1)
Quarter: 2023Q1

REPORT INFORMATION
  Report Type: Spontaneous
  Country: CN (occurrence: CN)
  Receive Date: 20230210
  Receipt Date: 20230210
  Transmission Date: 20230417
  Serious: Yes (Other)
  Sender: FDA-Public Use
  Company Number: CN-ELI_LILLY_AND_COMPANY-CN202302000218

PATIENT
  Sex: Female

DRUGS (1)
  1. HUMULIN 70/30 [Suspect]
     Active Substance: INSULIN HUMAN
     Indication: Diabetes mellitus
     Dosage: UNK UNK, UNKNOWN
     Route: 058

REACTIONS (7)
  - Cerebral infarction [Unknown]
  - Hemiplegia [Unknown]
  - Cerebral disorder [Unknown]
  - Visual impairment [Unknown]
  - Slow response to stimuli [Unknown]
  - Incorrect dose administered [Unknown]
  - Product dose omission issue [Unknown]
